FAERS Safety Report 7600235-0 (Version None)
Quarter: 2011Q3

REPORT INFORMATION
  Report Type: 
  Country: None (occurrence: None)
  Receive Date: 20110711
  Receipt Date: 20110706
  Transmission Date: 20111222
  Serious: Yes (Other)
  Sender: FDA-Public Use
  Company Number: US-SANOFI-AVENTIS-2011SA035213

PATIENT
  Sex: Male

DRUGS (2)
  1. MULTAQ [Suspect]
     Route: 065
     Dates: start: 20100101
  2. LIPITOR [Concomitant]

REACTIONS (3)
  - JAUNDICE [None]
  - BILE DUCT CANCER [None]
  - HEPATIC ENZYME INCREASED [None]
